FAERS Safety Report 6616048-2 (Version None)
Quarter: 2010Q1

REPORT INFORMATION
  Report Type: 
  Country: None (occurrence: None)
  Receive Date: 20100305
  Receipt Date: 20100226
  Transmission Date: 20100710
  Serious: Yes (Hospitalization)
  Sender: FDA-Public Use
  Company Number: A0848150A

PATIENT
  Sex: Female

DRUGS (6)
  1. ACITRETIN [Suspect]
     Indication: PSORIASIS
     Route: 048
     Dates: start: 20070101, end: 20090101
  2. ACITRETIN [Suspect]
     Route: 048
     Dates: start: 20090101
  3. CORTICOID [Suspect]
     Indication: DRUG USE FOR UNKNOWN INDICATION
  4. CARBAMAZEPINE [Concomitant]
     Indication: EPILEPSY
  5. PROPRANOLOL HYDROCHLORIDE [Concomitant]
     Indication: HYPERTENSION
  6. AMITRIPTYLINE HCL [Concomitant]
     Indication: SEDATION

REACTIONS (6)
  - CYANOSIS [None]
  - ILL-DEFINED DISORDER [None]
  - OEDEMA [None]
  - PSORIASIS [None]
  - SKIN CHAPPED [None]
  - WOUND [None]
